FAERS Safety Report 4462447-7 (Version None)
Quarter: 2004Q3

REPORT INFORMATION
  Report Type: 
  Country: None (occurrence: None)
  Receive Date: 20040924
  Receipt Date: 20040910
  Transmission Date: 20050211
  Serious: Yes (Other)
  Sender: FDA-Public Use
  Company Number: 2004051002

PATIENT
  Sex: Male
  Weight: 104.3273 kg

DRUGS (1)
  1. LIPITOR [Suspect]
     Indication: ILL-DEFINED DISORDER

REACTIONS (4)
  - ACCIDENT [None]
  - IMPAIRED HEALING [None]
  - LIMB INJURY [None]
  - NERVE INJURY [None]
